FAERS Safety Report 7702505-4 (Version None)
Quarter: 2011Q3

REPORT INFORMATION
  Report Type: 
  Country: None (occurrence: None)
  Receive Date: 20110823
  Receipt Date: 20110815
  Transmission Date: 20111222
  Serious: No
  Sender: FDA-Public Use
  Company Number: US-BIOGENIDEC-2010BI026752

PATIENT
  Age: 43 Year
  Sex: Female

DRUGS (2)
  1. TYSABRI [Suspect]
     Indication: MULTIPLE SCLEROSIS
     Route: 042
     Dates: start: 20080407, end: 20090105
  2. TYSABRI [Suspect]
     Route: 042
     Dates: start: 20100125

REACTIONS (4)
  - FEELING OF BODY TEMPERATURE CHANGE [None]
  - DRUG INEFFECTIVE [None]
  - DYSGEUSIA [None]
  - AMNESIA [None]
